FAERS Safety Report 9127988 (Version 2)
Quarter: 2013Q1

REPORT INFORMATION
  Report Type: Spontaneous
  Country: JP (occurrence: JP)
  Receive Date: 20130228
  Receipt Date: 20130329
  Transmission Date: 20140127
  Serious: Yes (Life-Threatening, Other)
  Sender: FDA-Public Use
  Company Number: JP-PFIZER INC-2013069687

PATIENT
  Age: 50 Year
  Sex: Male

DRUGS (6)
  1. SOLU-MEDROL [Suspect]
     Indication: OEDEMA
     Dosage: 500 MG DAILY
     Route: 042
     Dates: start: 20130219
  2. DIPRIVAN [Concomitant]
     Dosage: UNK
  3. FENTANYL [Concomitant]
     Route: 042
  4. ULTIVA [Concomitant]
     Dosage: UNK
  5. ESLAX [Concomitant]
     Route: 042
  6. EPHEDRINE [Concomitant]
     Route: 042

REACTIONS (2)
  - Anaphylactic shock [Recovering/Resolving]
  - Surgery [Recovering/Resolving]
